FAERS Safety Report 10096070 (Version 2)
Quarter: 2014Q2

REPORT INFORMATION
  Report Type: Spontaneous
  Country: US (occurrence: US)
  Receive Date: 20140422
  Receipt Date: 20140509
  Transmission Date: 20141212
  Serious: Yes (Hospitalization)
  Sender: FDA-Public Use
  Company Number: US-BAYER-2014-056795

PATIENT
  Age: 27 Year
  Sex: Female

DRUGS (8)
  1. YASMIN [Suspect]
     Dosage: UNK
  2. ALBUTEROL [Concomitant]
  3. PREDNISONE [Concomitant]
  4. DOXYCYCLINE [Concomitant]
  5. TYLENOL [PARACETAMOL] [Concomitant]
  6. PROTONIX [Concomitant]
  7. ADVAIR [Concomitant]
  8. PROVENTIL [Concomitant]

REACTIONS (1)
  - Pulmonary embolism [Recovered/Resolved]
